FAERS Safety Report 8254768-7 (Version None)
Quarter: 2012Q2

REPORT INFORMATION
  Report Type: 
  Country: None (occurrence: None)
  Receive Date: 20120403
  Receipt Date: 20120328
  Transmission Date: 20120825
  Serious: Yes (Death)
  Sender: FDA-Public Use
  Company Number: PHEH2012US007017

PATIENT

DRUGS (2)
  1. OCTREOTIDE ACETATE [Suspect]
     Indication: GASTRINOMA
  2. DEXTROSE [Concomitant]

REACTIONS (1)
  - HYPOGLYCAEMIA [None]
